FAERS Safety Report 4451679-X (Version None)
Quarter: 2004Q3

REPORT INFORMATION
  Report Type: 
  Country: None (occurrence: None)
  Receive Date: 20040915
  Receipt Date: 20040907
  Transmission Date: 20050211
  Serious: Yes (Hospitalization)
  Sender: FDA-Public Use
  Company Number: 2004232162DE

PATIENT
  Age: 58 Year
  Sex: Female

DRUGS (3)
  1. ADRIAMYCIN PFS [Suspect]
     Dosage: 50 MG/M2, EVERY 3 WEEKS, IV
     Route: 042
     Dates: start: 20021101
  2. DOCETAXEL (DOCETAXEL) [Suspect]
     Dosage: 75 MG/M2, EVERY 3 WEEKS, IV
     Route: 042
     Dates: start: 20021101
  3. NEUPOGEN [Suspect]
     Indication: PROPHYLAXIS
     Dosage: 300 UG, QD, SUBCUTANEOUS
     Route: 058
     Dates: start: 20021201, end: 20021206

REACTIONS (6)
  - ANAEMIA [None]
  - ESCHERICHIA BACTERAEMIA [None]
  - FEBRILE NEUTROPENIA [None]
  - MUCOSAL INFLAMMATION [None]
  - STAPHYLOCOCCAL BACTERAEMIA [None]
  - THROMBOCYTOPENIA [None]
